FAERS Safety Report 4641089-4 (Version None)
Quarter: 2005Q2

REPORT INFORMATION
  Report Type: 
  Country: None (occurrence: None)
  Receive Date: 20050324
  Receipt Date: 20050211
  Transmission Date: 20051028
  Serious: No
  Sender: FDA-Public Use
  Company Number: 212115

PATIENT
  Age: 57 Year
  Sex: Male
  Weight: 71.7 kg

DRUGS (2)
  1. AVASTIN [Suspect]
     Indication: RENAL CELL CARCINOMA STAGE UNSPECIFIED
     Dosage: 700 MG, Q2W, INTRAVENOUS
     Route: 042
     Dates: start: 20041026
  2. LORAZEPAM [Concomitant]

REACTIONS (1)
  - HYPERTENSION [None]
